FAERS Safety Report 5217542-1 (Version None)
Quarter: 2007Q1

REPORT INFORMATION
  Report Type: 
  Country: None (occurrence: None)
  Receive Date: 20070124
  Receipt Date: 20060425
  Transmission Date: 20070707
  Serious: No
  Sender: FDA-Public Use
  Company Number: US-GLAXOSMITHKLINE-A0597363A

PATIENT
  Age: 80 Year
  Sex: Female

DRUGS (4)
  1. PAXIL CR [Suspect]
     Dosage: 12.5MG PER DAY
     Route: 048
     Dates: start: 20050118, end: 20050124
  2. VITAMINS [Concomitant]
  3. ALTACE [Concomitant]
  4. PAXIL [Concomitant]
     Dosage: 20MG UNKNOWN
     Route: 048

REACTIONS (13)
  - ANXIETY [None]
  - DEPRESSION [None]
  - EXPIRED DRUG ADMINISTERED [None]
  - GAIT DISTURBANCE [None]
  - HYPERSENSITIVITY [None]
  - ILL-DEFINED DISORDER [None]
  - MALAISE [None]
  - MENTAL DISORDER [None]
  - MUSCULAR WEAKNESS [None]
  - NERVOUSNESS [None]
  - THINKING ABNORMAL [None]
  - TREMOR [None]
  - WEIGHT DECREASED [None]
